FAERS Safety Report 5134564-X (Version None)
Quarter: 2006Q4

REPORT INFORMATION
  Report Type: 
  Country: None (occurrence: None)
  Receive Date: 20061019
  Receipt Date: 20061006
  Transmission Date: 20070319
  Serious: Yes (Death)
  Sender: FDA-Public Use
  Company Number: OXCD20050002

PATIENT
  Age: 33 Year
  Sex: Female
  Weight: 60.3284 kg

DRUGS (6)
  1. OXYCODONE HCL [Suspect]
     Dates: start: 20050623, end: 20050623
  2. PROZAC [Concomitant]
  3. THIAZIDE [Concomitant]
  4. THIAZIDE [Concomitant]
  5. BETAGEN [Concomitant]
  6. MULTI-VITAMIN [Concomitant]

REACTIONS (21)
  - BLOOD CADMIUM INCREASED [None]
  - BLOOD CALCIUM DECREASED [None]
  - BLOOD CHLORIDE INCREASED [None]
  - BLOOD POTASSIUM INCREASED [None]
  - BLOOD ZINC INCREASED [None]
  - CARBON DIOXIDE DECREASED [None]
  - CONTUSION [None]
  - HYPERTENSIVE NEPHROPATHY [None]
  - INJURY ASPHYXIATION [None]
  - KIDNEY SMALL [None]
  - LOSS OF CONSCIOUSNESS [None]
  - MITRAL VALVE DISEASE [None]
  - MYOCARDIAL FIBROSIS [None]
  - NARCOTIC INTOXICATION [None]
  - NEPHROSCLEROSIS [None]
  - PULMONARY CONGESTION [None]
  - PULMONARY OEDEMA [None]
  - RESPIRATORY DEPRESSION [None]
  - RESUSCITATION [None]
  - SLEEP PARALYSIS [None]
  - VOMITING [None]
